FAERS Safety Report 14663326 (Version 5)
Quarter: 2020Q2

REPORT INFORMATION
  Report Type: Spontaneous
  Country: CA (occurrence: CA)
  Receive Date: 20180321
  Receipt Date: 20200422
  Transmission Date: 20200713
  Serious: Yes (Other)
  Sender: FDA-Public Use
  Company Number: PHHY2018CA043789

PATIENT
  Age: 38 Year
  Sex: Male

DRUGS (21)
  1. LINEZOLID. [Suspect]
     Active Substance: LINEZOLID
     Indication: ENDOPHTHALMITIS
     Route: 042
  2. MYCOPHENOLATE MOFETIL. [Suspect]
     Active Substance: MYCOPHENOLATE MOFETIL
     Indication: IMMUNOSUPPRESSANT DRUG THERAPY
     Route: 065
  3. TOBRAMYCIN. [Suspect]
     Active Substance: TOBRAMYCIN
     Indication: PSEUDOMONAS INFECTION
     Route: 042
  4. HOMATROPINE HBR A-HOMA+ [Suspect]
     Active Substance: HOMATROPINE HYDROBROMIDE
     Indication: IRIDOCYCLITIS
     Dosage: UNK UNK, QD (2 EVERY 1 DAYS)
     Route: 047
  5. MAXIDEX [Suspect]
     Active Substance: DEXAMETHASONE
     Indication: IRIDOCYCLITIS
     Route: 047
  6. CIPROFLOXACIN. [Suspect]
     Active Substance: CIPROFLOXACIN
     Indication: ENDOPHTHALMITIS
     Route: 065
  7. MOXIFLOXACIN. [Suspect]
     Active Substance: MOXIFLOXACIN
     Indication: ENDOPHTHALMITIS
     Route: 047
  8. VORICONAZOLE. [Suspect]
     Active Substance: VORICONAZOLE
     Indication: ENDOPHTHALMITIS
     Route: 065
  9. AMPHOTERICIN B. [Suspect]
     Active Substance: AMPHOTERICIN B
     Indication: ENDOPHTHALMITIS
     Route: 047
  10. TACROLIMUS. [Suspect]
     Active Substance: TACROLIMUS
     Indication: IMMUNOSUPPRESSANT DRUG THERAPY
     Route: 065
  11. PIPERACILLIN SODIUM,TAZOBACTAM SODIUM [Suspect]
     Active Substance: PIPERACILLIN SODIUM\TAZOBACTAM SODIUM
     Indication: ENDOPHTHALMITIS
     Dosage: UNK
     Route: 065
  12. SALICYLIC ACID, TRIAMCINOLONE ACETONIDE [Suspect]
     Active Substance: SALICYLIC ACID\TRIAMCINOLONE ACETONIDE
     Indication: UVEITIS
     Route: 065
  13. MINIMS PREDNISOLONE SODIUM PHOSPHATE [Suspect]
     Active Substance: PREDNISOLONE SODIUM PHOSPHATE
     Indication: IRIDOCYCLITIS
     Dosage: 1 UNK, UNK (1 HOUR(S))
     Route: 047
  14. CEFTAZIDIME. [Suspect]
     Active Substance: CEFTAZIDIME
     Indication: ENDOPHTHALMITIS
     Route: 047
  15. VAL VANCOMYCIN [Suspect]
     Active Substance: VANCOMYCIN HYDROCHLORIDE
     Indication: ENDOPHTHALMITIS
  16. PREDNISONE. [Suspect]
     Active Substance: PREDNISONE
     Indication: IMMUNOSUPPRESSANT DRUG THERAPY
     Dosage: UNK
     Route: 048
  17. VAL VANCOMYCIN [Suspect]
     Active Substance: VANCOMYCIN HYDROCHLORIDE
     Indication: PSEUDOMONAS INFECTION
     Route: 047
  18. PREDNISONE. [Suspect]
     Active Substance: PREDNISONE
     Indication: UVEITIS
     Dosage: UNK
     Route: 065
  19. COLISTIN [Suspect]
     Active Substance: COLISTIN
     Indication: PSEUDOMONAS INFECTION
     Route: 065
  20. HOMATROPINE [Concomitant]
     Active Substance: HOMATROPINE HYDROBROMIDE
     Indication: IRIDOCYCLITIS
     Dosage: UNK UNK, QD (2 EVERY 1 DAYS)
     Route: 065
  21. DEXAMETHASONE SODIUM PHOSPHATE. [Concomitant]
     Active Substance: DEXAMETHASONE SODIUM PHOSPHATE
     Indication: IRIDOCYCLITIS
     Route: 065

REACTIONS (9)
  - Choroiditis [Not Recovered/Not Resolved]
  - Uveitis [Not Recovered/Not Resolved]
  - Visual acuity reduced [Not Recovered/Not Resolved]
  - Eye pain [Not Recovered/Not Resolved]
  - Drug ineffective [Not Recovered/Not Resolved]
  - Endophthalmitis [Not Recovered/Not Resolved]
  - Condition aggravated [Not Recovered/Not Resolved]
  - Intraocular pressure increased [Not Recovered/Not Resolved]
  - Product use issue [Not Recovered/Not Resolved]
